FAERS Safety Report 10196209 (Version 1)
Quarter: 2014Q2

REPORT INFORMATION
  Report Type: Spontaneous
  Country: US (occurrence: None)
  Receive Date: 20140523
  Receipt Date: 20140523
  Transmission Date: 20141212
  Serious: Yes (Hospitalization)
  Sender: FDA-Public Use
  Company Number: None

PATIENT
  Age: 71 Year
  Sex: Male

DRUGS (7)
  1. INSULIN REGULAR [Suspect]
     Indication: HYPERGLYCAEMIA
     Dosage: 87 UNITS ONCE IV
     Route: 042
     Dates: start: 20140414, end: 20140414
  2. CALCIUM [Concomitant]
  3. DEXTROSE [Concomitant]
  4. INSULIN [Concomitant]
  5. METOPROLOL [Concomitant]
  6. PIPERACILLIN\TAZOBACTAM [Concomitant]
  7. VANCOMYCIN [Concomitant]

REACTIONS (1)
  - Hypoglycaemia [None]
